FAERS Safety Report 5372114-3 (Version None)
Quarter: 2007Q2

REPORT INFORMATION
  Report Type: 
  Country: None (occurrence: None)
  Receive Date: 20070627
  Receipt Date: 20070622
  Transmission Date: 20071010
  Serious: Yes (Hospitalization)
  Sender: FDA-Public Use
  Company Number: DE-ASTRAZENECA-2007PK01248

PATIENT
  Age: 37 Year
  Sex: Female

DRUGS (14)
  1. SEROQUEL [Suspect]
     Route: 048
     Dates: start: 20070203, end: 20070220
  2. SEROQUEL [Suspect]
     Route: 048
     Dates: start: 20070221, end: 20070221
  3. SEROQUEL [Suspect]
     Route: 048
     Dates: start: 20070222, end: 20070222
  4. SEROQUEL [Suspect]
     Route: 048
     Dates: start: 20070223, end: 20070306
  5. SEROQUEL [Suspect]
     Route: 048
     Dates: start: 20070307, end: 20070313
  6. SEROQUEL [Suspect]
     Route: 048
     Dates: start: 20070314, end: 20070314
  7. SEROQUEL [Suspect]
     Route: 048
     Dates: start: 20070315, end: 20070319
  8. SOLIAN [Suspect]
     Route: 048
     Dates: start: 20070214, end: 20070214
  9. SOLIAN [Suspect]
     Route: 048
     Dates: start: 20070215, end: 20070215
  10. SOLIAN [Suspect]
     Route: 048
     Dates: start: 20070216, end: 20070221
  11. SOLIAN [Suspect]
     Route: 048
     Dates: start: 20070222, end: 20070223
  12. SOLIAN [Suspect]
     Route: 048
     Dates: start: 20070224, end: 20070226
  13. DIPIPERON [Suspect]
     Route: 048
     Dates: start: 20070219
  14. TAVOR [Concomitant]
     Route: 048
     Dates: start: 20070219

REACTIONS (1)
  - GALACTORRHOEA [None]
